FAERS Safety Report 8094033-4 (Version None)
Quarter: 2012Q1

REPORT INFORMATION
  Report Type: 
  Country: None (occurrence: None)
  Receive Date: 20120131
  Receipt Date: 20120126
  Transmission Date: 20120608
  Serious: Yes (Other)
  Sender: FDA-Public Use
  Company Number: PHEH2012US002372

PATIENT
  Sex: Male

DRUGS (2)
  1. EXJADE [Suspect]
     Indication: THALASSAEMIA
     Dosage: 1000 MG, DAILY
     Route: 048
     Dates: start: 20110818
  2. EXJADE [Suspect]
     Indication: SICKLE CELL ANAEMIA

REACTIONS (2)
  - SPLENOMEGALY [None]
  - SPLENIC INFECTION [None]
